FAERS Safety Report 11343817 (Version 3)
Quarter: 2015Q3

REPORT INFORMATION
  Report Type: Spontaneous
  Country: US (occurrence: US)
  Receive Date: 20150806
  Receipt Date: 20150903
  Transmission Date: 20151125
  Serious: Yes (Death, Hospitalization, Other)
  Sender: FDA-Public Use
  Company Number: PHEH2015US014359

PATIENT
  Age: 42 Year
  Sex: Female

DRUGS (7)
  1. GILENYA [Suspect]
     Active Substance: FINGOLIMOD HYDROCHLORIDE
     Indication: RELAPSING-REMITTING MULTIPLE SCLEROSIS
     Dosage: 0.5 MG, QD
     Route: 048
     Dates: start: 20150612
  2. DETROL [Concomitant]
     Active Substance: TOLTERODINE TARTRATE
     Indication: OPTIC NEURITIS
     Dosage: 2 MG, BID
     Route: 048
  3. SOLU-MEDROL [Concomitant]
     Active Substance: METHYLPREDNISOLONE SODIUM SUCCINATE
     Indication: OPTIC NEURITIS
     Dosage: UNK
     Route: 042
     Dates: start: 20131216
  4. SOLU-MEDROL [Concomitant]
     Active Substance: METHYLPREDNISOLONE SODIUM SUCCINATE
     Dosage: UNK (FOR 3 DAYS)
     Route: 042
     Dates: start: 20150720
  5. AUBAGIO [Concomitant]
     Active Substance: TERIFLUNOMIDE
     Indication: MULTIPLE SCLEROSIS
     Dosage: 14 MG, QD
     Route: 048
  6. PREDNISONE. [Concomitant]
     Active Substance: PREDNISONE
     Indication: PRODUCT USED FOR UNKNOWN INDICATION
     Dosage: 10 MG TABLET 50 MG DAILY WITH FOOD OR MILK AND TAPER 10 MG/DAY EVERY THIRD DAY, ONCE A DAY
     Route: 065
  7. CYMBALTA [Concomitant]
     Active Substance: DULOXETINE HYDROCHLORIDE
     Indication: OPTIC NEURITIS
     Dosage: 60 MG, QD
     Route: 048

REACTIONS (22)
  - Crepitations [Fatal]
  - Muscle spasticity [Fatal]
  - Hemiplegia [Fatal]
  - Oedema mucosal [Unknown]
  - Multiple sclerosis relapse [Fatal]
  - Cognitive disorder [Fatal]
  - Mental status changes [Fatal]
  - Pneumonia aspiration [Fatal]
  - Central nervous system lesion [Fatal]
  - Increased bronchial secretion [Fatal]
  - Blindness [Fatal]
  - Confusional state [Fatal]
  - Atelectasis [Fatal]
  - Paresis [Fatal]
  - Depression [Fatal]
  - Respiratory failure [Fatal]
  - Encephalopathy [Fatal]
  - Hemiparesis [Fatal]
  - Visual impairment [Fatal]
  - Pleocytosis [Fatal]
  - Hypothyroidism [Unknown]
  - CSF protein increased [Unknown]

NARRATIVE: CASE EVENT DATE: 20150723
